FAERS Safety Report 8590136 (Version 2)
Quarter: 2013Q1

REPORT INFORMATION
  Report Type: Report from Study
  Country: CA (occurrence: CA)
  Receive Date: 20120601
  Receipt Date: 20130228
  Transmission Date: 20140127
  Serious: Yes (Hospitalization, Disabling)
  Sender: FDA-Public Use
  Company Number: CA-JNJFOC-20120518441

PATIENT
  Age: 58 None
  Sex: Female
  Weight: 78.02 kg

DRUGS (1)
  1. SIMPONI [Suspect]
     Indication: RHEUMATOID ARTHRITIS
     Route: 058
     Dates: start: 2010

REACTIONS (3)
  - Diaphragmatic paralysis [Unknown]
  - Pneumonia [Unknown]
  - Hip arthroplasty [Recovering/Resolving]
